FAERS Safety Report 5530462-8 (Version None)
Quarter: 2007Q4

REPORT INFORMATION
  Report Type: 
  Country: None (occurrence: None)
  Receive Date: 20071130
  Receipt Date: 20071129
  Transmission Date: 20080405
  Serious: Yes (Other)
  Sender: FDA-Public Use
  Company Number: GR-BRISTOL-MYERS SQUIBB COMPANY-13997937

PATIENT
  Age: 47 Year
  Sex: Male

DRUGS (4)
  1. KARVEA [Suspect]
     Indication: HYPERTENSION
     Route: 048
  2. KARVEZIDE [Suspect]
     Indication: HYPERTENSION
  3. INDAPAMIDE [Concomitant]
     Route: 048
  4. VASTAREL [Concomitant]
     Route: 048

REACTIONS (1)
  - AZOOSPERMIA [None]
